FAERS Safety Report 9792016 (Version 1)
Quarter: 2014Q1

REPORT INFORMATION
  Report Type: Spontaneous
  Country: US (occurrence: US)
  Receive Date: 20140102
  Receipt Date: 20140102
  Transmission Date: 20141002
  Serious: No
  Sender: FDA-Public Use
  Company Number: US-B.I. PHARMACEUTICALS,INC./RIDGEFIELD-2013-BI-43545BP

PATIENT
  Age: 43 Year
  Sex: Male
  Weight: 167 kg

DRUGS (2)
  1. PRADAXA [Suspect]
     Indication: ATRIAL FIBRILLATION
     Dosage: 300 MG
     Route: 048
     Dates: start: 20131003, end: 201311
  2. SOTALOL [Concomitant]
     Indication: ATRIAL FIBRILLATION
     Dosage: 80 MG
     Route: 048
     Dates: start: 201310, end: 201310

REACTIONS (2)
  - Atrial fibrillation [Not Recovered/Not Resolved]
  - Ventricular tachycardia [Not Recovered/Not Resolved]
